FAERS Safety Report 4306879-6 (Version None)
Quarter: 2004Q1

REPORT INFORMATION
  Report Type: 
  Country: None (occurrence: None)
  Receive Date: 20040227
  Receipt Date: 20040130
  Transmission Date: 20041129
  Serious: Yes (Hospitalization, Other)
  Sender: FDA-Public Use
  Company Number: FR-GLAXOSMITHKLINE-B0322686A

PATIENT
  Age: 64 Year
  Sex: Male

DRUGS (11)
  1. ZIAGEN [Suspect]
     Indication: HIV INFECTION
     Route: 048
  2. ZERIT [Suspect]
     Indication: HIV INFECTION
     Route: 048
  3. ATAZANAVIR [Suspect]
     Indication: HIV INFECTION
     Route: 048
  4. MIDAZOLAM HCL [Suspect]
     Indication: ANAESTHESIA
  5. TRACRIUM [Suspect]
     Indication: ANAESTHESIA
  6. ETOMIDATE [Suspect]
     Indication: ANAESTHESIA
  7. SUFENTA [Suspect]
     Indication: ANAESTHESIA
  8. LASILIX [Concomitant]
     Route: 065
  9. CO-RENITEC [Concomitant]
     Route: 065
  10. ASPIRIN [Concomitant]
     Route: 065
  11. GLUCOPHAGE [Concomitant]
     Route: 065

REACTIONS (6)
  - ASPIRATION [None]
  - CONVULSION [None]
  - DRUG INTERACTION [None]
  - DYSPHAGIA [None]
  - MONOPLEGIA [None]
  - MYOCLONUS [None]
